FAERS Safety Report 14370745 (Version 3)
Quarter: 2018Q3

REPORT INFORMATION
  Report Type: Spontaneous
  Country: US (occurrence: US)
  Receive Date: 20180110
  Receipt Date: 20180710
  Transmission Date: 20181010
  Serious: No
  Sender: FDA-Public Use
  Company Number: US-PFIZER INC-2018007204

PATIENT
  Age: 77 Year
  Sex: Female

DRUGS (1)
  1. IBRANCE [Suspect]
     Active Substance: PALBOCICLIB
     Dosage: 125 MG, CYCLIC (DAILYX21 DAYS, 7 DAYS OFF)/ (Q DAY X21, 7 DAYS OFF)
     Route: 048
     Dates: end: 20180703

REACTIONS (3)
  - Weight decreased [Unknown]
  - Skin discolouration [Unknown]
  - Alopecia [Unknown]
